FAERS Safety Report 5324776-4 (Version None)
Quarter: 2007Q2

REPORT INFORMATION
  Report Type: 
  Country: None (occurrence: None)
  Receive Date: 20070515
  Receipt Date: 20070504
  Transmission Date: 20071010
  Serious: Yes (Other)
  Sender: FDA-Public Use
  Company Number: PHBS2007DE06823

PATIENT
  Age: 70 Year
  Sex: Female

DRUGS (4)
  1. DIAZEPAM [Concomitant]
     Dosage: 54 MG/DAY
     Route: 065
  2. MELPERONE [Concomitant]
     Dosage: 100 MG/DAY
     Route: 065
  3. MIRTAZAPINE [Concomitant]
     Dosage: 45 MG/DAY
     Route: 065
  4. CARBAMAZEPINE [Suspect]
     Dosage: 500 MG/DAY
     Route: 065

REACTIONS (11)
  - AGITATION [None]
  - ALANINE AMINOTRANSFERASE INCREASED [None]
  - DELIRIUM [None]
  - DISORIENTATION [None]
  - GAMMA-GLUTAMYLTRANSFERASE INCREASED [None]
  - HEPATIC ENZYME INCREASED [None]
  - HYPERTENSION [None]
  - MOOD SWINGS [None]
  - PANIC ATTACK [None]
  - RESTLESSNESS [None]
  - TACHYCARDIA [None]
